FAERS Safety Report 5242967-8 (Version None)
Quarter: 2007Q1

REPORT INFORMATION
  Report Type: 
  Country: None (occurrence: None)
  Receive Date: 20070215
  Receipt Date: 20070202
  Transmission Date: 20070707
  Serious: Yes (Other)
  Sender: FDA-Public Use
  Company Number: CTI_0909_2006

PATIENT
  Sex: Male
  Weight: 86.1834 kg

DRUGS (5)
  1. ZYFLO [Suspect]
     Indication: ASTHMA
     Dosage: 600 MG 4 X DAY PO
     Route: 048
     Dates: start: 20060901, end: 20060913
  2. XOLAIR [Concomitant]
  3. DECONGESTIVES [Concomitant]
  4. ANTIHISTAMINES [Concomitant]
  5. ANTIBIOTICS [Concomitant]

REACTIONS (1)
  - TRANSAMINASES INCREASED [None]
